FAERS Safety Report 15481566 (Version 1)
Quarter: 2018Q4

REPORT INFORMATION
  Report Type: Spontaneous
  Country: US (occurrence: US)
  Receive Date: 20181010
  Receipt Date: 20181010
  Transmission Date: 20190205
  Serious: No
  Sender: FDA-Public Use
  Company Number: US-ACCORD-070496

PATIENT
  Age: 55 Year
  Sex: Male
  Weight: 127.01 kg

DRUGS (2)
  1. GLIMEPIRIDE ACCORD [Suspect]
     Active Substance: GLIMEPIRIDE
     Indication: TYPE 2 DIABETES MELLITUS
     Dosage: STRENGTH: 4 MG
     Route: 048
     Dates: start: 20180719
  2. GLIPIZIDE ACTAVIS [Suspect]
     Active Substance: GLIPIZIDE
     Indication: TYPE 2 DIABETES MELLITUS
     Dosage: STRENGTH: 10 MG

REACTIONS (4)
  - Drug ineffective [Unknown]
  - Intentional overdose [Unknown]
  - Product taste abnormal [Unknown]
  - Wrong technique in product usage process [Unknown]
